FAERS Safety Report 4586888-2 (Version None)
Quarter: 2005Q1

REPORT INFORMATION
  Report Type: 
  Country: None (occurrence: None)
  Receive Date: 20050218
  Receipt Date: 20050126
  Transmission Date: 20050727
  Serious: Yes (Hospitalization)
  Sender: FDA-Public Use
  Company Number: BE-ROCHE-393651

PATIENT
  Age: 48 Year
  Sex: Male
  Weight: 70 kg

DRUGS (8)
  1. PEG-INTERFERON ALFA 2A (RO 25-8310) [Suspect]
     Route: 058
     Dates: start: 20041220, end: 20050121
  2. RIBAVIRIN [Suspect]
     Route: 048
     Dates: start: 20041220, end: 20050121
  3. DIAZEPAM [Concomitant]
     Dates: start: 20040413, end: 20050121
  4. PAROXETINE [Concomitant]
     Dates: start: 20031230
  5. TRAZODONE HCL [Concomitant]
     Dates: start: 20040224
  6. LEVOCETIRIZINE [Concomitant]
     Dates: start: 20050104, end: 20050121
  7. UNSPECIFIED DRUG [Concomitant]
     Dosage: DRUG NAME REPORTED AS TENO-CORTNID.
     Dates: start: 20050104, end: 20050121
  8. UNSPECIFIED DRUG [Concomitant]
     Dosage: DRUG NAME REPORTED AS MENTLIOL ENIME.
     Dates: start: 20050117, end: 20050121

REACTIONS (1)
  - DIPLOPIA [None]
